FAERS Safety Report 19868937 (Version 1)
Quarter: 2021Q3

REPORT INFORMATION
  Report Type: Spontaneous
  Country: JP (occurrence: JP)
  Receive Date: 20210923
  Receipt Date: 20210923
  Transmission Date: 20211014
  Serious: Yes (Other)
  Sender: FDA-Public Use
  Company Number: JP-ROCHE-2897807

PATIENT
  Age: 75 Year
  Sex: Male

DRUGS (5)
  1. IBUPROFEN. [Suspect]
     Active Substance: IBUPROFEN
     Indication: BACK PAIN
     Route: 048
  2. TECENTRIQ [Suspect]
     Active Substance: ATEZOLIZUMAB
     Indication: HEPATOCELLULAR CARCINOMA
     Route: 041
     Dates: start: 202010
  3. COVID?19 VACCINE [Concomitant]
     Route: 065
     Dates: start: 20210615, end: 20210615
  4. COVID?19 VACCINE [Concomitant]
     Indication: COVID-19 PROPHYLAXIS
     Route: 065
     Dates: start: 20210516, end: 20210516
  5. AVASTIN [Suspect]
     Active Substance: BEVACIZUMAB
     Indication: HEPATOCELLULAR CARCINOMA
     Dosage: LAST DOSE ADMINISTERED ON 21/JUL/2021
     Route: 042
     Dates: start: 202010

REACTIONS (3)
  - Myelodysplastic syndrome [Unknown]
  - Neutrophil count decreased [Not Recovered/Not Resolved]
  - Acute myeloid leukaemia [Unknown]

NARRATIVE: CASE EVENT DATE: 20210811
